FAERS Safety Report 18016286 (Version 1)
Quarter: 2020Q3

REPORT INFORMATION
  Report Type: Spontaneous
  Country: CN (occurrence: CN)
  Receive Date: 20200713
  Receipt Date: 20200713
  Transmission Date: 20201103
  Serious: Yes (Other)
  Sender: FDA-Public Use
  Company Number: NVSC2020CN194723

PATIENT
  Age: 78 Year
  Sex: Female

DRUGS (9)
  1. DICLOFENAC [Suspect]
     Active Substance: DICLOFENAC
     Indication: BACK PAIN
  2. VITAMIN B6 [Concomitant]
     Active Substance: PYRIDOXINE HYDROCHLORIDE
     Indication: NUTRITIONAL SUPPLEMENTATION
     Dosage: 400 MG
     Route: 065
     Dates: start: 20190104
  3. GLUCOSE [Concomitant]
     Active Substance: DEXTROSE
     Indication: NUTRITIONAL SUPPLEMENTATION
     Dosage: UNK
     Route: 065
     Dates: start: 20190104
  4. SALINE [Concomitant]
     Active Substance: SODIUM CHLORIDE
     Indication: NUTRITIONAL SUPPLEMENTATION
     Dosage: 100 ML
     Route: 065
     Dates: start: 20190104
  5. DICLOFENAC [Suspect]
     Active Substance: DICLOFENAC
     Indication: ABDOMINAL PAIN
     Dosage: UNK
     Route: 054
     Dates: start: 20190105
  6. VITAMIIN C [Concomitant]
     Active Substance: ASCORBIC ACID
     Indication: NUTRITIONAL SUPPLEMENTATION
     Dosage: 1 G
     Route: 065
     Dates: start: 20190104
  7. CEREBROPROTEIN HYDROLYSATE [Concomitant]
     Active Substance: PROTEIN HYDROLYSATE
     Indication: NUTRITIONAL SUPPLEMENTATION
     Dosage: 0.75 G
     Route: 065
     Dates: start: 20190104
  8. SALVIA MILTIORRHIZA [Concomitant]
     Active Substance: HERBALS
     Indication: CEREBROVASCULAR DISORDER
     Dosage: 5 ML
     Route: 042
     Dates: start: 20190104
  9. CEFOTAXIME SODIUM [Concomitant]
     Active Substance: CEFOTAXIME SODIUM
     Indication: INFECTION
     Dosage: 1 G
     Route: 065
     Dates: start: 20190104

REACTIONS (12)
  - Respiratory rate decreased [Recovered/Resolved]
  - Night sweats [Recovered/Resolved]
  - Hypoaesthesia [Recovered/Resolved]
  - Loss of consciousness [Recovered/Resolved]
  - Dizziness [Recovered/Resolved]
  - Dyspnoea [Recovered/Resolved]
  - Blood pressure decreased [Recovered/Resolved]
  - Breath sounds abnormal [Recovered/Resolved]
  - Rales [Recovered/Resolved]
  - Pallor [Recovered/Resolved]
  - Anaphylactic shock [Recovered/Resolved]
  - Nausea [Recovered/Resolved]

NARRATIVE: CASE EVENT DATE: 20190105
